FAERS Safety Report 17372360 (Version 2)
Quarter: 2020Q1

REPORT INFORMATION
  Report Type: Spontaneous
  Country: BR (occurrence: BR)
  Receive Date: 20200205
  Receipt Date: 20200214
  Transmission Date: 20200409
  Serious: Yes (Other)
  Sender: FDA-Public Use
  Company Number: BR-GLAXOSMITHKLINE-BR2020AMR017165

PATIENT
  Sex: Female
  Weight: 13 kg

DRUGS (1)
  1. ZINNAT [Suspect]
     Active Substance: CEFUROXIME
     Indication: URINARY TRACT INFECTION
     Dosage: UNK
     Dates: start: 20200107, end: 20200117

REACTIONS (2)
  - Pyrexia [Unknown]
  - Escherichia infection [Unknown]
